FAERS Safety Report 9467062 (Version 1)
Quarter: 2013Q3

REPORT INFORMATION
  Report Type: Spontaneous
  Country: US (occurrence: US)
  Receive Date: 20130820
  Receipt Date: 20130820
  Transmission Date: 20140515
  Serious: No
  Sender: FDA-Public Use
  Company Number: US-TEVA-427143USA

PATIENT
  Age: 52 Year
  Sex: Female
  Weight: 98.06 kg

DRUGS (7)
  1. NUVIGIL [Suspect]
     Indication: SLEEP APNOEA SYNDROME
     Dates: start: 201205
  2. CITALOPRAM [Concomitant]
  3. ESCITALOPRAM [Concomitant]
  4. ESTRADIOL [Concomitant]
  5. NATURAL VITAMINS [Concomitant]
  6. TIMOLOL [Concomitant]
     Indication: GLAUCOMA
  7. BRIMONIDINE [Concomitant]
     Indication: GLAUCOMA

REACTIONS (9)
  - Acne [Not Recovered/Not Resolved]
  - Wound [Not Recovered/Not Resolved]
  - Scar [Not Recovered/Not Resolved]
  - Arthropathy [Not Recovered/Not Resolved]
  - Limb discomfort [Not Recovered/Not Resolved]
  - Mobility decreased [Not Recovered/Not Resolved]
  - Muscular weakness [Not Recovered/Not Resolved]
  - Pain in extremity [Not Recovered/Not Resolved]
  - Arthralgia [Not Recovered/Not Resolved]
